FAERS Safety Report 6318108-2 (Version None)
Quarter: 2009Q3

REPORT INFORMATION
  Report Type: 
  Country: None (occurrence: None)
  Receive Date: 20090821
  Receipt Date: 20090814
  Transmission Date: 20100115
  Serious: Yes (Hospitalization)
  Sender: FDA-Public Use
  Company Number: HU-JNJFOC-20090804443

PATIENT
  Age: 38 Year
  Sex: Female

DRUGS (1)
  1. RISPERDAL CONSTA [Suspect]
     Indication: SCHIZOPHRENIA
     Route: 030

REACTIONS (5)
  - BLOOD HUMAN CHORIONIC GONADOTROPIN INCREASED [None]
  - BREAST DISCOMFORT [None]
  - DYSMENORRHOEA [None]
  - ECTOPIC PREGNANCY [None]
  - URINE HUMAN CHORIONIC GONADOTROPIN INCREASED [None]
